FAERS Safety Report 11291901 (Version 1)
Quarter: 2015Q3

REPORT INFORMATION
  Report Type: Spontaneous
  Country: US (occurrence: US)
  Receive Date: 20150722
  Receipt Date: 20150722
  Transmission Date: 20151125
  Serious: Yes (Life-Threatening)
  Sender: FDA-Public Use
  Company Number: US-SA-2015SA103750

PATIENT
  Sex: Female

DRUGS (1)
  1. LANTUS [Suspect]
     Active Substance: INSULIN GLARGINE
     Indication: TYPE 2 DIABETES MELLITUS
     Dosage: VIAL
     Route: 065

REACTIONS (3)
  - Glycosylated haemoglobin decreased [Unknown]
  - Liver transplant [Unknown]
  - Weight decreased [Unknown]

NARRATIVE: CASE EVENT DATE: 2007
